FAERS Safety Report 4408583-2 (Version None)
Quarter: 2004Q3

REPORT INFORMATION
  Report Type: 
  Country: None (occurrence: None)
  Receive Date: 20040723
  Receipt Date: 20040712
  Transmission Date: 20050211
  Serious: Yes (Hospitalization)
  Sender: FDA-Public Use
  Company Number: 2004223559CH

PATIENT
  Sex: Female
  Weight: 72 kg

DRUGS (15)
  1. CELEBREX [Suspect]
     Dosage: 200 MG, BID , ORAL
     Route: 048
     Dates: start: 20040609, end: 20040621
  2. PRIADEL(LITHIUM CARBONATE) TABLET [Suspect]
     Indication: BIPOLAR DISORDER
     Dosage: 400 MG, QD, ORAL
     Route: 048
     Dates: end: 20040610
  3. LITHIOFOR(LITHIUM SULFATE) [Suspect]
     Indication: BIPOLAR DISORDER
     Dosage: 660 MG, QD, ORAL
     Route: 048
     Dates: start: 20040611, end: 20040621
  4. CO-RENITEN(HYDROCHLOROTHIAZIDE, ENALAPRIL MALEATE) TABLET, 12.5/20 MG [Suspect]
     Indication: HYPERTENSION
     Dosage: 20/12.5 ORAL
     Route: 048
     Dates: end: 20040616
  5. LASIX [Suspect]
     Indication: HYPERTENSION
     Dosage: 40 MG QD, ORAL
     Route: 048
     Dates: start: 20040614, end: 20040616
  6. RENITEC [Concomitant]
  7. ZOLOFT [Concomitant]
  8. ASPIRIN [Concomitant]
  9. ALDACTONE [Concomitant]
  10. AMOMEL [Concomitant]
  11. SINTROM [Concomitant]
  12. DUOFER [Concomitant]
  13. SUPRADYN (FERROUS CARBONATE, MOLYBDENUM SESQUIOXIDE, SODIUM BORATE, ZI [Concomitant]
  14. NOVOMIX 30 [Concomitant]
  15. NEXIUM [Concomitant]

REACTIONS (12)
  - ATAXIA [None]
  - CARDIAC FAILURE [None]
  - CONFUSIONAL STATE [None]
  - DIFFICULTY IN WALKING [None]
  - DRUG INTERACTION [None]
  - DRUG LEVEL ABOVE THERAPEUTIC [None]
  - FALL [None]
  - GENERAL PHYSICAL HEALTH DETERIORATION [None]
  - HAEMATOMA [None]
  - SPEECH DISORDER [None]
  - THERAPY NON-RESPONDER [None]
  - TREMOR [None]
